FAERS Safety Report 5974287-8 (Version None)
Quarter: 2008Q4

REPORT INFORMATION
  Report Type: 
  Country: None (occurrence: None)
  Receive Date: 20081128
  Receipt Date: 20081117
  Transmission Date: 20090506
  Serious: No
  Sender: FDA-Public Use
  Company Number: US020567

PATIENT
  Sex: Male

DRUGS (1)
  1. ORAL TRANSMUCOSAL FENTANYL CITRATE [Suspect]
     Dosage: ORAL
     Route: 048
     Dates: start: 20080901, end: 20080901

REACTIONS (1)
  - ACCIDENTAL DRUG INTAKE BY CHILD [None]
